FAERS Safety Report 23956096 (Version 1)
Quarter: 2024Q2

REPORT INFORMATION
  Report Type: Spontaneous
  Country: US (occurrence: None)
  Receive Date: 20240607
  Receipt Date: 20240607
  Transmission Date: 20240716
  Serious: Yes (Hospitalization)
  Sender: FDA-Public Use
  Company Number: None

PATIENT
  Age: 78 Year
  Sex: Male
  Weight: 75 kg

DRUGS (1)
  1. PEMBROLIZUMAB [Suspect]
     Active Substance: PEMBROLIZUMAB
     Indication: Non-small cell lung cancer
     Dosage: FREQUENCY : ONCE;?
     Route: 042
     Dates: start: 20220823, end: 20240521

REACTIONS (5)
  - Anaphylactic reaction [None]
  - Hypotension [None]
  - Respiratory depression [None]
  - Abdominal pain [None]
  - Flatulence [None]

NARRATIVE: CASE EVENT DATE: 20240521
